FAERS Safety Report 5684815-8 (Version None)
Quarter: 2008Q1

REPORT INFORMATION
  Report Type: 
  Country: None (occurrence: None)
  Receive Date: 20080328
  Receipt Date: 20071025
  Transmission Date: 20080703
  Serious: Yes (Life-Threatening, Hospitalization)
  Sender: FDA-Public Use
  Company Number: US-BRISTOL-MYERS SQUIBB COMPANY-13936257

PATIENT
  Age: 87 Year
  Sex: Male
  Weight: 56 kg

DRUGS (11)
  1. ERBITUX [Suspect]
     Indication: COLON CANCER METASTATIC
     Dosage: PLANNED LOADING DOSE WAS 640 MG.
     Route: 042
     Dates: start: 20071004, end: 20071004
  2. ATENOLOL [Concomitant]
     Route: 048
  3. ASPIRIN [Concomitant]
     Route: 048
  4. ALBUTEROL [Concomitant]
     Dosage: 3-4 TIMES A DAY
     Route: 055
  5. SPIRIVA [Concomitant]
     Route: 055
  6. ZOCOR [Concomitant]
     Route: 048
  7. PYRIDOXINE HCL [Concomitant]
     Route: 048
  8. LISINOPRIL [Concomitant]
  9. BENADRYL [Concomitant]
     Route: 042
     Dates: start: 20071004, end: 20071004
  10. COMPAZINE [Concomitant]
     Dosage: 1/2 TABLET AS NECESSARY
  11. PRINIVIL [Concomitant]

REACTIONS (1)
  - RESPIRATORY ARREST [None]
